FAERS Safety Report 6308629-0 (Version None)
Quarter: 2009Q3

REPORT INFORMATION
  Report Type: 
  Country: None (occurrence: None)
  Receive Date: 20090813
  Receipt Date: 20090807
  Transmission Date: 20100115
  Serious: Yes (Hospitalization)
  Sender: FDA-Public Use
  Company Number: FR-WYE-H08573909

PATIENT
  Sex: Female

DRUGS (4)
  1. INIPOMP [Suspect]
     Indication: HIATUS HERNIA
     Route: 048
     Dates: start: 20010101
  2. ACTONEL [Suspect]
     Indication: OSTEOPOROSIS
     Route: 048
     Dates: start: 20000101, end: 20090203
  3. EFFERALGAN [Suspect]
     Indication: ARTHRALGIA
     Route: 048
     Dates: start: 20000101, end: 20090203
  4. SALAZOPYRIN [Suspect]
     Indication: POLYARTHRITIS
     Route: 048
     Dates: start: 20081117, end: 20090203

REACTIONS (2)
  - AGRANULOCYTOSIS [None]
  - ANAEMIA HAEMOLYTIC AUTOIMMUNE [None]
